FAERS Safety Report 10967038 (Version 1)
Quarter: 2015Q1

REPORT INFORMATION
  Report Type: Spontaneous
  Country: CA (occurrence: CA)
  Receive Date: 20150330
  Receipt Date: 20150330
  Transmission Date: 20150721
  Serious: Yes (Other)
  Sender: FDA-Public Use
  Company Number: CA-TEVA-550984ACC

PATIENT
  Age: 53 Year
  Sex: Female
  Weight: 87 kg

DRUGS (2)
  1. MESTINON [Concomitant]
     Active Substance: PYRIDOSTIGMINE BROMIDE
     Dosage: UNKNOWN FORM STRENGTH
     Route: 065
  2. MYCOPHENOLATE MOFETIL. [Suspect]
     Active Substance: MYCOPHENOLATE MOFETIL
     Indication: MYASTHENIA GRAVIS
     Dosage: 150 MILLIGRAM DAILY; UNKNOWN FORM STRENGTH
     Route: 048

REACTIONS (3)
  - Myasthenia gravis [Unknown]
  - Disease recurrence [Unknown]
  - Product substitution issue [Unknown]
